FAERS Safety Report 16058298 (Version 2)
Quarter: 2019Q1

REPORT INFORMATION
  Report Type: Report from Study
  Country: US (occurrence: US)
  Receive Date: 20190311
  Receipt Date: 20190314
  Transmission Date: 20190418
  Serious: Yes (Death, Other)
  Sender: FDA-Public Use
  Company Number: US-ROCHE-2279900

PATIENT

DRUGS (5)
  1. CYCLOPHOSPHAMIDE. [Suspect]
     Active Substance: CYCLOPHOSPHAMIDE
     Indication: NON-HODGKIN^S LYMPHOMA
     Route: 065
  2. RITUXIMAB. [Suspect]
     Active Substance: RITUXIMAB
     Indication: NON-HODGKIN^S LYMPHOMA
     Route: 065
  3. METHOTREXATE. [Suspect]
     Active Substance: METHOTREXATE
     Indication: NON-HODGKIN^S LYMPHOMA
     Route: 065
  4. THIOTEPA. [Suspect]
     Active Substance: THIOTEPA
     Indication: NON-HODGKIN^S LYMPHOMA
     Route: 065
  5. BUSULFAN. [Suspect]
     Active Substance: BUSULFAN
     Indication: NON-HODGKIN^S LYMPHOMA
     Route: 065

REACTIONS (10)
  - Infection [Unknown]
  - Neurotoxicity [Unknown]
  - Death [Fatal]
  - Mucosal inflammation [Unknown]
  - Skin toxicity [Unknown]
  - Anaemia [Unknown]
  - Cystitis haemorrhagic [Unknown]
  - Renal injury [Unknown]
  - Febrile neutropenia [Unknown]
  - Electrolyte imbalance [Unknown]
